FAERS Safety Report 13082391 (Version 7)
Quarter: 2017Q4

REPORT INFORMATION
  Report Type: Spontaneous
  Country: US (occurrence: US)
  Receive Date: 20170103
  Receipt Date: 20171013
  Transmission Date: 20180320
  Serious: Yes (Hospitalization, Other)
  Sender: FDA-Public Use
  Company Number: US-ACTELION-A-US2016-147462

PATIENT
  Age: 71 Year
  Sex: Female

DRUGS (50)
  1. TRACLEER [Suspect]
     Active Substance: BOSENTAN
     Indication: PULMONARY ARTERIAL HYPERTENSION
     Dosage: 125 MG, BID
     Route: 048
     Dates: start: 2008, end: 20170824
  2. ATENOLOL. [Concomitant]
     Active Substance: ATENOLOL
     Dosage: 25 MG, QAM
     Dates: start: 20160911
  3. GABAPENTIN. [Concomitant]
     Active Substance: GABAPENTIN
     Dosage: 150 MG, QPM
     Dates: start: 20161215
  4. CEPHALEXIN. [Concomitant]
     Active Substance: CEPHALEXIN
     Dosage: 250 MG, Q12HRS
     Dates: start: 20161215
  5. SILDENAFIL. [Concomitant]
     Active Substance: SILDENAFIL
     Dosage: 40 MG, TID
     Dates: start: 20161209
  6. LEVOTHYROXINE. [Concomitant]
     Active Substance: LEVOTHYROXINE
     Dosage: 100 MCG, QAM
     Dates: start: 20161209
  7. BUMEX [Concomitant]
     Active Substance: BUMETANIDE
     Dosage: 2 MG, UNK
  8. PEPCID [Concomitant]
     Active Substance: FAMOTIDINE
     Dosage: UNK
  9. FLONASE [Concomitant]
     Active Substance: FLUTICASONE PROPIONATE
     Dosage: 50 MCG, 2 SPRAY
  10. NPH INSULIN [Concomitant]
     Active Substance: INSULIN BEEF
     Dosage: 30 U Q AMAC + 20 U Q PM AC
  11. SENNOSIDES A+B [Concomitant]
     Active Substance: SENNOSIDES A AND B
     Indication: DIARRHOEA
     Dosage: 8.6 MG, QPM
     Route: 048
  12. ROXANOL [Concomitant]
     Active Substance: MORPHINE SULFATE
     Indication: PAIN
     Dosage: 0.25 ML TO 1 ML, EVERY HOURS PRN
     Route: 060
  13. PRILOSEC [Concomitant]
     Active Substance: OMEPRAZOLE MAGNESIUM
     Indication: GASTROOESOPHAGEAL REFLUX DISEASE
     Dosage: 20 MG, BEFORE BREAKFAST
     Route: 048
  14. RENVELA [Concomitant]
     Active Substance: SEVELAMER CARBONATE
     Dosage: 800 MG, UNK
  15. FAMOTIDINE. [Concomitant]
     Active Substance: FAMOTIDINE
     Dosage: 20 MG, UNK
  16. ZOFRAN [Concomitant]
     Active Substance: ONDANSETRON HYDROCHLORIDE
  17. ATIVAN [Concomitant]
     Active Substance: LORAZEPAM
     Indication: ANXIETY
     Dosage: 0.5 MG, Q4HRS, 1-2 TABLETS
     Route: 048
  18. CARDIZEM [Concomitant]
     Active Substance: DILTIAZEM HYDROCHLORIDE
     Dosage: 60 MG, TID, 1.5 TABS
     Route: 048
  19. PROZAC [Concomitant]
     Active Substance: FLUOXETINE HYDROCHLORIDE
     Dosage: 20 MG, UNK
     Route: 048
  20. COUMADIN [Concomitant]
     Active Substance: WARFARIN SODIUM
     Dosage: 5 UNK, UNK
  21. ZITHROMAX [Concomitant]
     Active Substance: AZITHROMYCIN DIHYDRATE
     Dosage: 250 MG, UNK
     Route: 048
  22. AYR SALINE [Concomitant]
  23. NEILMED SINUS RINSE [Concomitant]
     Active Substance: SODIUM BICARBONATE\SODIUM CHLORIDE
  24. CALCITRIOL. [Concomitant]
     Active Substance: CALCITRIOL
     Dosage: 0.25 MCG, MONDAY, WEDNESDAY AND FRIDAY
     Route: 048
  25. COMPAZINE [Concomitant]
     Active Substance: PROCHLORPERAZINE MALEATE
     Indication: NAUSEA
     Dosage: 10 MG, Q6HRS
  26. ZYLOPRIM [Concomitant]
     Active Substance: ALLOPURINOL
     Dosage: 100 MG, UNK
     Route: 048
  27. COUMADIN [Concomitant]
     Active Substance: WARFARIN SODIUM
     Dosage: 2 MG, QD
     Route: 048
  28. REVATIO [Concomitant]
     Active Substance: SILDENAFIL CITRATE
     Dosage: 20 MG, UNK
     Route: 048
  29. TREPROSTINIL SODIUM [Concomitant]
     Active Substance: TREPROSTINIL SODIUM
     Dosage: 66 NG/KG, UNK
  30. ATROVENT [Concomitant]
     Active Substance: IPRATROPIUM BROMIDE
     Dosage: 0.03 %, UNK
     Route: 055
  31. OMEPRAZOLE. [Concomitant]
     Active Substance: OMEPRAZOLE
     Dosage: 20 MG, QD
  32. WARFARIN [Concomitant]
     Active Substance: WARFARIN
     Dosage: 2 MG, PRN
  33. HUMULIN N [Concomitant]
     Active Substance: INSULIN HUMAN
     Dosage: 18 UNITS SUBQ QAM AND QPM AC
  34. ROXANOL [Concomitant]
     Active Substance: MORPHINE SULFATE
     Indication: NAUSEA
  35. PROAMATINE [Concomitant]
     Active Substance: MIDODRINE HYDROCHLORIDE
     Dosage: 5 MG, UNK
     Route: 048
  36. FERROUS SULFATE. [Concomitant]
     Active Substance: FERROUS SULFATE
     Dosage: 325 UNK, UNK
     Route: 048
  37. SIMVASTATIN. [Concomitant]
     Active Substance: SIMVASTATIN
     Dosage: 40 MG, QPM
     Dates: start: 20161209
  38. FLUOXETINE [Concomitant]
     Active Substance: FLUOXETINE HYDROCHLORIDE
     Dosage: 20 MG, QD
     Route: 048
  39. TESSALON [Concomitant]
     Active Substance: BENZONATATE
     Indication: COUGH
     Dosage: 100 MG, TID
     Route: 048
  40. NOVOLIN [Concomitant]
     Active Substance: INSULIN HUMAN
     Dosage: UNK
  41. SENNA LAXATIVE [Concomitant]
     Active Substance: SENNOSIDES
     Dosage: 8.6 MG, QPM
     Route: 048
  42. COMPAZINE [Concomitant]
     Active Substance: PROCHLORPERAZINE MALEATE
     Indication: VOMITING
  43. ALLOPURINOL. [Concomitant]
     Active Substance: ALLOPURINOL
     Dosage: 100 MG, UNK
     Dates: start: 20161209
  44. HUMULIN R [Concomitant]
     Active Substance: INSULIN HUMAN
     Dosage: 5 U, UNK
  45. VITAMIN D2 [Concomitant]
     Active Substance: ERGOCALCIFEROL
     Dosage: 50000 U, UVERY 2 WEEKS
  46. TREPROSTINIL SODIUM [Concomitant]
     Active Substance: TREPROSTINIL SODIUM
     Dosage: 60 NG/KG, PER MIN
     Dates: start: 20161211
  47. CALCITROL [Concomitant]
     Active Substance: CALCITRIOL
     Dosage: 0.25 MCG, UNK
     Dates: start: 20161209
  48. REMODULIN [Concomitant]
     Active Substance: TREPROSTINIL
     Dosage: 5 UNK, UNK
     Route: 058
  49. NEURONTIN [Concomitant]
     Active Substance: GABAPENTIN
     Dosage: 100 MG, 3 CAPS DAILY AT BEDTIME
     Route: 048
  50. ZOCOR [Concomitant]
     Active Substance: SIMVASTATIN
     Dosage: 40 MG, UNK
     Route: 048

REACTIONS (10)
  - Disease progression [Not Recovered/Not Resolved]
  - Chest pain [Recovering/Resolving]
  - Renal failure [Not Recovered/Not Resolved]
  - Cardiac failure [Unknown]
  - Palpitations [Recovering/Resolving]
  - Cardiac failure congestive [Unknown]
  - Dialysis [Not Recovered/Not Resolved]
  - Atrial flutter [Recovering/Resolving]
  - Dyspnoea [Unknown]
  - Oedema peripheral [Unknown]

NARRATIVE: CASE EVENT DATE: 20161205
